FAERS Safety Report 14142719 (Version 3)
Quarter: 2017Q4

REPORT INFORMATION
  Report Type: Spontaneous
  Country: FR (occurrence: FR)
  Receive Date: 20171030
  Receipt Date: 20171226
  Transmission Date: 20180321
  Serious: Yes (Other)
  Sender: FDA-Public Use
  Company Number: FR-MERCK KGAA-2032711

PATIENT
  Age: 60 Year
  Sex: Male

DRUGS (4)
  1. DOLIPRANE [Concomitant]
     Active Substance: ACETAMINOPHEN
  2. NOVOTHYROX [Suspect]
     Active Substance: LEVOTHYROXINE SODIUM
     Indication: THYROIDECTOMY
     Route: 048
     Dates: start: 20170321, end: 201710
  3. COVERAM (COVERAM) [Concomitant]
  4. KETOPROFEN. [Concomitant]
     Active Substance: KETOPROFEN

REACTIONS (4)
  - Tremor [Not Recovered/Not Resolved]
  - Muscle spasms [Not Recovered/Not Resolved]
  - Hyperhidrosis [Not Recovered/Not Resolved]
  - Blood thyroid stimulating hormone increased [Recovered/Resolved]

NARRATIVE: CASE EVENT DATE: 201703
